FAERS Safety Report 4469022-9 (Version None)
Quarter: 2004Q4

REPORT INFORMATION
  Report Type: 
  Country: None (occurrence: None)
  Receive Date: 20041005
  Receipt Date: 20031121
  Transmission Date: 20050328
  Serious: Yes (Death)
  Sender: FDA-Public Use
  Company Number: ENT 2003-0163

PATIENT
  Age: 68 Year
  Sex: Female

DRUGS (4)
  1. COMTAN [Suspect]
     Indication: PARKINSON'S DISEASE
     Dosage: 1400 MG ORAL
     Route: 048
     Dates: start: 20030315
  2. SINEMET [Concomitant]
  3. SINEMET CR [Concomitant]
  4. REQUIP [Concomitant]

REACTIONS (4)
  - ANGER [None]
  - CONVULSION [None]
  - DELIRIUM [None]
  - NEUROLEPTIC MALIGNANT SYNDROME [None]
